FAERS Safety Report 6470490-1 (Version None)
Quarter: 2009Q4

REPORT INFORMATION
  Report Type: 
  Country: None (occurrence: None)
  Receive Date: 20091203
  Receipt Date: 20091125
  Transmission Date: 20100525
  Serious: Yes (Other)
  Sender: FDA-Public Use
  Company Number: US-BAYER-200917149BCC

PATIENT
  Age: 84 Year
  Sex: Male
  Weight: 78 kg

DRUGS (7)
  1. ASPIRIN [Suspect]
     Indication: ARTHRALGIA
     Dosage: TOTAL DAILY DOSE: 4000 MG  UNIT DOSE: 500 MG
     Route: 048
     Dates: start: 20091118
  2. AMARYL [Concomitant]
     Route: 065
  3. SOTALOL HCL [Concomitant]
     Route: 065
  4. FUROSEMIDE [Concomitant]
     Route: 065
  5. KLOR-CON [Concomitant]
     Route: 065
  6. OXYGEN [Concomitant]
     Route: 065
  7. EMBLIZER WITH ALBUTEROL + IPRATROPIUM [Concomitant]

REACTIONS (1)
  - DEAFNESS BILATERAL [None]
